FAERS Safety Report 24833285 (Version 2)
Quarter: 2025Q1

REPORT INFORMATION
  Report Type: Report from Study
  Country: CH (occurrence: CH)
  Receive Date: 20250111
  Receipt Date: 20250313
  Transmission Date: 20250409
  Serious: Yes (Hospitalization)
  Sender: ABBVIE
  Company Number: CH-ABBVIE-6080509

PATIENT
  Age: 36 Year
  Sex: Female

DRUGS (5)
  1. RISANKIZUMAB [Suspect]
     Active Substance: RISANKIZUMAB
     Indication: Crohn^s disease
     Route: 042
     Dates: start: 20241202
  2. NIFEDIPINE [Concomitant]
     Active Substance: NIFEDIPINE
     Indication: Crohn^s disease
     Dosage: 0.2%
     Route: 054
     Dates: start: 202410
  3. CALCIUM CARBONATE\CHOLECALCIFEROL [Concomitant]
     Active Substance: CALCIUM CARBONATE\CHOLECALCIFEROL
     Indication: Prophylaxis
     Dosage: 1 TABLET?500/800
     Route: 048
     Dates: start: 202409
  4. METAMUCIL [Concomitant]
     Active Substance: PLANTAGO SEED
     Indication: Anal fissure
     Route: 048
     Dates: start: 202410
  5. SALOFALK [Concomitant]
     Indication: Crohn^s disease
     Route: 048
     Dates: start: 202307

REACTIONS (1)
  - Anal fissure [Recovered/Resolved]

NARRATIVE: CASE EVENT DATE: 20241210
